FAERS Safety Report 16464188 (Version 2)
Quarter: 2020Q1

REPORT INFORMATION
  Report Type: Spontaneous
  Country: FR (occurrence: FR)
  Receive Date: 20190621
  Receipt Date: 20200316
  Transmission Date: 20200409
  Serious: Yes (Other)
  Sender: FDA-Public Use
  Company Number: FR-PFIZER INC-2019261723

PATIENT
  Age: 16 Year
  Sex: Male

DRUGS (2)
  1. CONTRAMAL [Suspect]
     Active Substance: TRAMADOL HYDROCHLORIDE
     Dosage: UNK
     Route: 065
     Dates: start: 201709
  2. LYRICA [Suspect]
     Active Substance: PREGABALIN
     Dosage: 6 DF, 1X/DAY
     Route: 065

REACTIONS (3)
  - Drug use disorder [Not Recovered/Not Resolved]
  - Product used for unknown indication [Not Recovered/Not Resolved]
  - Dependence [Not Recovered/Not Resolved]

NARRATIVE: CASE EVENT DATE: 2017
